FAERS Safety Report 9303390 (Version 1)
Quarter: 2012Q4

REPORT INFORMATION
  Report Type: Spontaneous
  Country: US (occurrence: None)
  Receive Date: 20121205
  Receipt Date: 20121205
  Transmission Date: 20130627
  Serious: Yes (Other)
  Sender: FDA-Public Use
  Company Number: OTH-PAT-2012010

PATIENT
  Age: 4 Year
  Sex: Male

DRUGS (1)
  1. CYSTADANE (BETAINE ANHYDROUS) (ORAL POWDER) 180MG [Suspect]
     Indication: COBALAMIN DEFICIENCY

REACTIONS (3)
  - Vomiting [None]
  - Abdominal discomfort [None]
  - Gastrooesophageal reflux disease [None]
